FAERS Safety Report 9253412 (Version 1)
Quarter: 2013Q2

REPORT INFORMATION
  Report Type: Spontaneous
  Country: US (occurrence: US)
  Receive Date: 20130425
  Receipt Date: 20130425
  Transmission Date: 20140414
  Serious: Yes (Hospitalization, Other)
  Sender: FDA-Public Use
  Company Number: US-AMGEN-USASP2013028423

PATIENT
  Age: 81 Year
  Sex: Male

DRUGS (4)
  1. NEUPOGEN [Suspect]
     Indication: NEUTROPENIA
     Dosage: UNK
     Dates: start: 201207
  2. REVLIMID [Concomitant]
     Indication: PLASMA CELL MYELOMA
     Dosage: UNK
     Dates: start: 201303
  3. VELCADE [Concomitant]
     Indication: PLASMA CELL MYELOMA
     Dosage: UNK
  4. VANCOMYCIN [Concomitant]
     Dosage: UNK

REACTIONS (5)
  - Plasma cell myeloma [Unknown]
  - Dehydration [Unknown]
  - Renal impairment [Unknown]
  - Neutropenia [Not Recovered/Not Resolved]
  - Pyrexia [Unknown]
